FAERS Safety Report 10200424 (Version 1)
Quarter: 2014Q2

REPORT INFORMATION
  Report Type: Spontaneous
  Country: CH (occurrence: CH)
  Receive Date: 20140528
  Receipt Date: 20140528
  Transmission Date: 20141212
  Serious: Yes (Hospitalization, Other)
  Sender: FDA-Public Use
  Company Number: CHPA2014CH006640

PATIENT
  Sex: Female
  Weight: 2.1 kg

DRUGS (6)
  1. TAVEGYL [Suspect]
     Dosage: UNK
     Route: 064
  2. CARBOPLATIN [Suspect]
     Route: 064
  3. DEXAMETHASONE [Suspect]
     Route: 064
  4. TAXOL [Suspect]
     Route: 064
  5. ZOFRAN [Suspect]
  6. MOTILIUM//DOMPERIDONE [Suspect]

REACTIONS (5)
  - Neonatal respiratory distress syndrome [Recovered/Resolved]
  - Kernicterus [Recovered/Resolved]
  - Congenital cerebral cyst [Unknown]
  - Premature baby [Recovered/Resolved]
  - Exposure during pregnancy [Recovered/Resolved]
